FAERS Safety Report 6675781-7 (Version None)
Quarter: 2010Q2

REPORT INFORMATION
  Report Type: 
  Country: None (occurrence: None)
  Receive Date: 20100411
  Receipt Date: 20100407
  Transmission Date: 20101027
  Serious: Yes (Hospitalization)
  Sender: FDA-Public Use
  Company Number: ES-BRISTOL-MYERS SQUIBB COMPANY-15051824

PATIENT
  Age: 20 Year
  Sex: Female

DRUGS (4)
  1. REYATAZ [Suspect]
  2. RITONAVIR [Suspect]
  3. TRUVADA [Suspect]
  4. SULFONAMIDE [Suspect]

REACTIONS (1)
  - RENAL FAILURE ACUTE [None]
